FAERS Safety Report 21948531 (Version 5)
Quarter: 2024Q2

REPORT INFORMATION
  Report Type: Spontaneous
  Country: US (occurrence: US)
  Receive Date: 20230203
  Receipt Date: 20240618
  Transmission Date: 20240716
  Serious: Yes (Other)
  Sender: FDA-Public Use
  Company Number: US-SA-SAC20230127001678

PATIENT
  Age: 46 Year
  Sex: Male

DRUGS (10)
  1. ELOCTATE [Suspect]
     Active Substance: EFMOROCTOCOG ALFA
     Indication: Factor VIII deficiency
     Dosage: 3800 U, Q4D (SLOW IV PUSH
     Route: 042
     Dates: start: 202112
  2. ELOCTATE [Suspect]
     Active Substance: EFMOROCTOCOG ALFA
     Indication: Factor VIII deficiency
     Dosage: 3800 U, Q4D (SLOW IV PUSH
     Route: 042
     Dates: start: 202112
  3. ELOCTATE [Suspect]
     Active Substance: EFMOROCTOCOG ALFA
     Dosage: 3800 U, PRN (SLOW IV PUSH)
     Route: 042
  4. ELOCTATE [Suspect]
     Active Substance: EFMOROCTOCOG ALFA
     Dosage: 3800 U, PRN (SLOW IV PUSH)
     Route: 042
  5. ELOCTATE [Suspect]
     Active Substance: EFMOROCTOCOG ALFA
     Dosage: 3500 U, Q4D
     Route: 042
     Dates: start: 202304
  6. ELOCTATE [Suspect]
     Active Substance: EFMOROCTOCOG ALFA
     Dosage: 3500 U, Q4D
     Route: 042
     Dates: start: 202304
  7. ELOCTATE [Suspect]
     Active Substance: EFMOROCTOCOG ALFA
     Dosage: 3500 U, PRN
     Route: 042
     Dates: start: 202304
  8. ELOCTATE [Suspect]
     Active Substance: EFMOROCTOCOG ALFA
     Dosage: 3500 U, PRN
     Route: 042
     Dates: start: 202304
  9. ELOCTATE [Suspect]
     Active Substance: EFMOROCTOCOG ALFA
     Dosage: 3500 U
     Route: 042
  10. ELOCTATE [Suspect]
     Active Substance: EFMOROCTOCOG ALFA
     Dosage: 3500 U
     Route: 042

REACTIONS (11)
  - Haemorrhage [Recovered/Resolved]
  - Haemorrhage [Recovering/Resolving]
  - Haemorrhage [Unknown]
  - Limb injury [Unknown]
  - Haemorrhage [Unknown]
  - Epistaxis [Unknown]
  - Contusion [Unknown]
  - Spontaneous haemorrhage [Unknown]
  - Skin haemorrhage [Recovered/Resolved]
  - Contusion [Recovered/Resolved]
  - Treatment noncompliance [Unknown]

NARRATIVE: CASE EVENT DATE: 20230101
